FAERS Safety Report 8718400 (Version 3)
Quarter: 2013Q1

REPORT INFORMATION
  Report Type: Spontaneous
  Country: FR (occurrence: FR)
  Receive Date: 20120810
  Receipt Date: 20130201
  Transmission Date: 20140127
  Serious: Yes (Death, Hospitalization)
  Sender: FDA-Public Use
  Company Number: FR-ASTRAZENECA-2012SE55792

PATIENT
  Age: 66 Year
  Sex: Male

DRUGS (38)
  1. INEXIUM [Suspect]
     Indication: GASTRODUODENAL ULCER
     Route: 042
     Dates: start: 20120119, end: 20120511
  2. MOPRAL [Suspect]
     Route: 042
     Dates: end: 20110511
  3. SPECIAFOLDINE [Suspect]
     Indication: VITAMIN B12 DEFICIENCY
     Route: 048
     Dates: start: 20120223, end: 20120405
  4. CELLCEPT [Suspect]
     Indication: CORD BLOOD TRANSPLANT THERAPY
     Route: 042
     Dates: start: 20120123
  5. CELLCEPT [Suspect]
     Indication: CORD BLOOD TRANSPLANT THERAPY
     Route: 042
     Dates: start: 20120304, end: 20120306
  6. EFFEXOR [Suspect]
     Indication: DEPRESSION
     Route: 048
     Dates: start: 20120313, end: 20120322
  7. STILNOX [Suspect]
     Indication: INSOMNIA
     Route: 048
     Dates: start: 20120214, end: 20120318
  8. SANDIMMUN [Suspect]
     Indication: CORD BLOOD TRANSPLANT THERAPY
     Dosage: 190 MG/D
     Route: 042
     Dates: start: 20120123
  9. SANDIMMUN [Suspect]
     Indication: CORD BLOOD TRANSPLANT THERAPY
     Dosage: 170 MG/D
     Route: 042
     Dates: start: 20120125
  10. SANDIMMUN [Suspect]
     Indication: CORD BLOOD TRANSPLANT THERAPY
     Dosage: 140 MG/D
     Route: 042
     Dates: start: 20120127
  11. SANDIMMUN [Suspect]
     Indication: CORD BLOOD TRANSPLANT THERAPY
     Dosage: 100 MG/D
     Route: 042
     Dates: start: 20120130
  12. SANDIMMUN [Suspect]
     Indication: CORD BLOOD TRANSPLANT THERAPY
     Dosage: 90 MG/D
     Route: 042
     Dates: start: 20120131
  13. SANDIMMUN [Suspect]
     Indication: CORD BLOOD TRANSPLANT THERAPY
     Dosage: 100 MG/D
     Route: 042
     Dates: start: 20120209
  14. SANDIMMUN [Suspect]
     Indication: CORD BLOOD TRANSPLANT THERAPY
     Dosage: 120 MG/D
     Route: 042
     Dates: start: 20120211
  15. SANDIMMUN [Suspect]
     Indication: CORD BLOOD TRANSPLANT THERAPY
     Dosage: 140 MG/D
     Route: 042
     Dates: start: 20120215
  16. SANDIMMUN [Suspect]
     Indication: CORD BLOOD TRANSPLANT THERAPY
     Dosage: 120 MG/D
     Route: 042
     Dates: start: 20120227
  17. SANDIMMUN [Suspect]
     Indication: CORD BLOOD TRANSPLANT THERAPY
     Dosage: 100 MG/D
     Route: 042
     Dates: start: 20120304
  18. SANDIMMUN [Suspect]
     Indication: CORD BLOOD TRANSPLANT THERAPY
     Dosage: 110 MG/D
     Route: 042
     Dates: start: 20120315
  19. SANDIMMUN [Suspect]
     Indication: CORD BLOOD TRANSPLANT THERAPY
     Dosage: 110 MG/D
     Route: 042
     Dates: start: 20120316
  20. SANDIMMUN [Suspect]
     Indication: CORD BLOOD TRANSPLANT THERAPY
     Dosage: DOSE PROGRESSIVELY DECREASED
     Route: 042
     Dates: start: 20120320
  21. SANDIMMUN [Suspect]
     Indication: CORD BLOOD TRANSPLANT THERAPY
     Dosage: 70 MG/D
     Route: 042
     Dates: start: 20120323, end: 20120404
  22. LEVOTHYROX [Suspect]
     Indication: HYPOTHYROIDISM
     Route: 042
     Dates: start: 2009, end: 20120511
  23. METHYPREDNISOLONE [Suspect]
     Indication: IMMUNOSUPPRESSION
     Route: 042
     Dates: start: 20120218, end: 20120511
  24. VFEND [Suspect]
     Indication: ASPERGILLUS INFECTION
     Route: 042
     Dates: start: 201110, end: 20120511
  25. HEPARINE CHOAY [Suspect]
     Indication: PROPHYLAXIS
     Route: 042
     Dates: start: 20120122, end: 20120322
  26. VIALEBEX [Suspect]
     Route: 042
     Dates: start: 20120312, end: 20120507
  27. PLITICAN [Suspect]
     Indication: PROPHYLAXIS
     Dosage: DAILY
     Route: 042
     Dates: start: 20120119, end: 20120319
  28. URSOLVAN [Suspect]
     Indication: CHOLESTASIS
     Route: 048
     Dates: start: 20120119, end: 20120511
  29. LOXEN LP [Suspect]
     Indication: HYPERTENSION
     Route: 048
     Dates: start: 20120206, end: 20120415
  30. ORACILLINE [Suspect]
     Indication: CYTOMEGALOVIRUS INFECTION
     Dosage: 2 000 000, DAILY
     Route: 048
     Dates: start: 20120221, end: 20120322
  31. BACTRIM FORTE [Suspect]
     Indication: CYTOMEGALOVIRUS INFECTION
     Route: 048
     Dates: start: 20120221, end: 20120405
  32. TIORFAN [Suspect]
     Indication: DIARRHOEA
     Route: 048
     Dates: start: 20120222, end: 20120425
  33. ROVALCYTE [Suspect]
     Indication: CYTOMEGALOVIRUS INFECTION
     Route: 048
     Dates: start: 20120309, end: 20120317
  34. TRANXENE [Suspect]
     Indication: ANXIOLYTIC THERAPY
     Route: 048
     Dates: start: 20120129, end: 20120316
  35. FUROSEMIDE [Suspect]
     Indication: OEDEMA PERIPHERAL
     Route: 048
     Dates: start: 20120224
  36. VIDAZA [Concomitant]
     Dosage: 7 COURSES IN TOTAL
     Dates: start: 201102
  37. IDARUBICINE [Concomitant]
     Indication: CHEMOTHERAPY
     Dates: start: 201110
  38. ARACYTINE [Concomitant]
     Indication: CHEMOTHERAPY
     Dates: start: 201110

REACTIONS (3)
  - Thrombotic microangiopathy [Fatal]
  - Multi-organ failure [Fatal]
  - Graft versus host disease [Fatal]
